FAERS Safety Report 22360967 (Version 1)
Quarter: 2023Q2

REPORT INFORMATION
  Report Type: Spontaneous
  Country: US (occurrence: None)
  Receive Date: 20230523
  Receipt Date: 20230523
  Transmission Date: 20230722
  Serious: Yes (Hospitalization)
  Sender: FDA-Public Use
  Company Number: None

PATIENT
  Age: 31 Year
  Sex: Female
  Weight: 80.2 kg

DRUGS (1)
  1. MIRCERA [Suspect]
     Active Substance: METHOXY POLYETHYLENE GLYCOL-EPOETIN BETA
     Indication: Anaemia
     Dosage: OTHER FREQUENCY : OTHER;?
     Route: 042
     Dates: start: 20230516, end: 20230516

REACTIONS (4)
  - Therapy interrupted [None]
  - Throat tightness [None]
  - Apnoea [None]
  - Injection related reaction [None]

NARRATIVE: CASE EVENT DATE: 20230516
